FAERS Safety Report 24607674 (Version 2)
Quarter: 2025Q3

REPORT INFORMATION
  Report Type: Spontaneous
  Country: EU (occurrence: EU)
  Receive Date: 20241112
  Receipt Date: 20250701
  Transmission Date: 20251020
  Serious: Yes (Life-Threatening)
  Sender: RANBAXY
  Company Number: EU-AFSSAPS-AM2024000789

PATIENT
  Age: 27 Year
  Sex: Male

DRUGS (10)
  1. ZOPICLONE [Suspect]
     Active Substance: ZOPICLONE
     Indication: Insomnia
     Dosage: 7.5 MILLIGRAM, DAILY
     Route: 048
     Dates: end: 20240825
  2. PANTOPRAZOLE [Suspect]
     Active Substance: PANTOPRAZOLE
     Indication: Product used for unknown indication
     Dosage: 20 MILLIGRAM, DAILY
     Route: 048
     Dates: end: 20240825
  3. CLOZAPINE [Suspect]
     Active Substance: CLOZAPINE
     Indication: Schizophrenia
     Dosage: 200 MILLIGRAM, DAILY
     Route: 048
     Dates: start: 20240803, end: 20240825
  4. LOXAPINE [Suspect]
     Active Substance: LOXAPINE
     Indication: Schizophrenia
     Dosage: 1DF 4/D
     Route: 048
     Dates: end: 20240825
  5. HALDOL [Suspect]
     Active Substance: HALOPERIDOL
     Indication: Schizophrenia
     Dosage: 250 DROPS /DAY
     Route: 048
     Dates: end: 20240825
  6. TRIMEPRAZINE [Suspect]
     Active Substance: TRIMEPRAZINE
     Indication: Insomnia
     Dosage: 30 MILLIGRAM, DAILY
     Route: 048
     Dates: end: 20240825
  7. VALIUM [Suspect]
     Active Substance: DIAZEPAM
     Indication: Schizophrenia
     Dosage: 30 DROPS 4/D
     Route: 048
     Dates: end: 20240825
  8. TROPATEPINE HYDROCHLORIDE [Suspect]
     Active Substance: TROPATEPINE HYDROCHLORIDE
     Indication: Drug toxicity prophylaxis
     Dosage: 20 MILLIGRAM, DAILY
     Route: 048
     Dates: end: 20240825
  9. ATROPINE [Suspect]
     Active Substance: ATROPINE
     Indication: Product used for unknown indication
     Dosage: 2 DROPS 2/D
     Route: 031
     Dates: end: 20240825
  10. VALPROATE SODIUM [Concomitant]
     Active Substance: VALPROATE SODIUM
     Indication: Schizophrenia
     Dosage: 750 MILLIGRAM, DAILY
     Route: 048
     Dates: end: 20240825

REACTIONS (3)
  - Intestinal obstruction [Recovered/Resolved with Sequelae]
  - Large intestine perforation [Recovered/Resolved with Sequelae]
  - Septic shock [Recovered/Resolved]

NARRATIVE: CASE EVENT DATE: 20240824
